FAERS Safety Report 17201466 (Version 1)
Quarter: 2020Q1

REPORT INFORMATION
  Report Type: Spontaneous
  Country: US (occurrence: US)
  Receive Date: 20191224
  Receipt Date: 20191224
  Transmission Date: 20200409
  Serious: Yes (Other)
  Sender: FDA-Public Use
  Company Number: None

PATIENT
  Age: 48 Year
  Sex: Male
  Weight: 124 kg

DRUGS (7)
  1. BUSPIRONE 7.5MG 2 TIMES DAIY [Concomitant]
  2. INSULIN DETEMIR 30 UNITS 2 TIMES DAILY [Concomitant]
  3. SYMBICORT 80-4.5 2 PUFS 2 TIMES DAILY [Concomitant]
  4. INSULIN ASPART 10 UNITS 3 TIMES DAILY [Concomitant]
  5. ESCITALOPRAM 20 MG ONCE DAILY [Concomitant]
  6. DULAGLUTIDE. [Suspect]
     Active Substance: DULAGLUTIDE
     Indication: TYPE 2 DIABETES MELLITUS
     Dosage: ?          OTHER FREQUENCY:WEEKLY;?
     Route: 058
     Dates: start: 20190711
  7. ATORVASTATIN 10 MG DAILY [Concomitant]

REACTIONS (1)
  - Cholelithiasis [None]
